FAERS Safety Report 4315423-9 (Version None)
Quarter: 2004Q1

REPORT INFORMATION
  Report Type: 
  Country: None (occurrence: None)
  Receive Date: 20040310
  Receipt Date: 20040129
  Transmission Date: 20041129
  Serious: Yes (Hospitalization)
  Sender: FDA-Public Use
  Company Number: 2004194999US

PATIENT
  Age: 81 Year
  Sex: Female
  Weight: 93.4 kg

DRUGS (8)
  1. EXEMESTANE [Suspect]
     Indication: BREAST CANCER FEMALE
     Dosage: 25 MG, QD, ORAL
     Route: 048
     Dates: start: 20020708
  2. LEVAQUIN [Suspect]
  3. INSULIN [Concomitant]
  4. PEPCID [Concomitant]
  5. ZIAC [Concomitant]
  6. AVAPRO [Concomitant]
  7. HYDROCHLOROTHIAZIDE [Concomitant]
  8. NORVASC [Concomitant]

REACTIONS (14)
  - CEREBROVASCULAR ACCIDENT [None]
  - CHILLS [None]
  - DYSARTHRIA [None]
  - HAEMATOCRIT DECREASED [None]
  - HAEMOGLOBIN DECREASED [None]
  - INTERNATIONAL NORMALISED RATIO DECREASED [None]
  - ISCHAEMIA [None]
  - LEUKOCYTOCLASTIC VASCULITIS [None]
  - NEPHRITIS INTERSTITIAL [None]
  - PETECHIAE [None]
  - RASH [None]
  - RENAL FAILURE ACUTE [None]
  - UPPER RESPIRATORY TRACT INFECTION [None]
  - URINARY TRACT INFECTION [None]
